FAERS Safety Report 19584189 (Version 1)
Quarter: 2021Q3

REPORT INFORMATION
  Report Type: Other
  Country: JP (occurrence: JP)
  Receive Date: 20210720
  Receipt Date: 20210720
  Transmission Date: 20211014
  Serious: Yes (Other)
  Sender: FDA-Public Use
  Company Number: JP-ROCHE-2867580

PATIENT

DRUGS (3)
  1. ATEZOLIZUMAB. [Suspect]
     Active Substance: ATEZOLIZUMAB
     Indication: NEOPLASM MALIGNANT
     Route: 065
  2. NIVOLUMAB [Suspect]
     Active Substance: NIVOLUMAB
     Indication: NEOPLASM MALIGNANT
     Route: 065
  3. PEMBROLIZUMAB. [Suspect]
     Active Substance: PEMBROLIZUMAB
     Indication: NEOPLASM MALIGNANT
     Route: 065

REACTIONS (15)
  - Colitis [Unknown]
  - Pancreatitis [Unknown]
  - Hypersensitivity [Unknown]
  - Rash [Unknown]
  - Adrenal insufficiency [Unknown]
  - Arthritis [Unknown]
  - Sjogren^s syndrome [Unknown]
  - Alanine aminotransferase increased [Unknown]
  - Nervous system disorder [Unknown]
  - Hypothyroidism [Unknown]
  - Pneumonitis [Unknown]
  - Nephritis [Unknown]
  - Diarrhoea [Unknown]
  - Myocarditis [Unknown]
  - Thrombocytopenia [Unknown]
